FAERS Safety Report 12907008 (Version 3)
Quarter: 2016Q4

REPORT INFORMATION
  Report Type: Report from Study
  Country: US (occurrence: US)
  Receive Date: 20161103
  Receipt Date: 20161208
  Transmission Date: 20170207
  Serious: Yes (Death, Hospitalization, Other)
  Sender: FDA-Public Use
  Company Number: US-GILEAD-2016-0238281

PATIENT
  Age: 54 Year
  Sex: Female

DRUGS (6)
  1. TYVASO [Concomitant]
     Active Substance: TREPROSTINIL
  2. AMBRISENTAN [Suspect]
     Active Substance: AMBRISENTAN
     Indication: PRODUCT USED FOR UNKNOWN INDICATION
     Dosage: 10 MG, QD
     Route: 065
     Dates: start: 20151029
  3. XARELTO [Concomitant]
     Active Substance: RIVAROXABAN
  4. COUMADIN [Concomitant]
     Active Substance: WARFARIN SODIUM
  5. VELETRI [Concomitant]
     Active Substance: EPOPROSTENOL
  6. ADCIRCA [Concomitant]
     Active Substance: TADALAFIL

REACTIONS (11)
  - Echocardiogram abnormal [Unknown]
  - Oedema peripheral [Recovering/Resolving]
  - Liver function test increased [Unknown]
  - Syncope [Unknown]
  - Pain in jaw [Recovered/Resolved]
  - Fatigue [Recovering/Resolving]
  - Death [Fatal]
  - Malaise [Unknown]
  - Pulmonary hypertension [Recovering/Resolving]
  - Headache [Recovered/Resolved]
  - Dyspnoea [Recovering/Resolving]

NARRATIVE: CASE EVENT DATE: 20161203
